FAERS Safety Report 5922662-X (Version None)
Quarter: 2008Q4

REPORT INFORMATION
  Report Type: 
  Country: None (occurrence: None)
  Receive Date: 20081017
  Receipt Date: 20081008
  Transmission Date: 20090506
  Serious: Yes (Hospitalization)
  Sender: FDA-Public Use
  Company Number: FR-JNJFOC-20081001711

PATIENT
  Age: 4 Year
  Sex: Male
  Weight: 16 kg

DRUGS (3)
  1. TOPIRAMATE [Suspect]
     Indication: CONVULSION
     Route: 048
  2. RIVOTRIL [Concomitant]
     Indication: CONVULSION
  3. MICROPAKINE [Concomitant]

REACTIONS (1)
  - RASH MACULO-PAPULAR [None]
